FAERS Safety Report 8896070 (Version 2)
Quarter: 2012Q4

REPORT INFORMATION
  Report Type: Report from Study
  Country: US (occurrence: US)
  Receive Date: 20121108
  Receipt Date: 20121129
  Transmission Date: 20130627
  Serious: Yes (Death)
  Sender: FDA-Public Use
  Company Number: US-ROCHE-1153707

PATIENT
  Sex: Female

DRUGS (1)
  1. SOMATROPIN [Suspect]
     Indication: RENAL FAILURE CHRONIC
     Route: 058

REACTIONS (1)
  - Death [Fatal]
